FAERS Safety Report 7352812-2 (Version None)
Quarter: 2011Q1

REPORT INFORMATION
  Report Type: 
  Country: None (occurrence: None)
  Receive Date: 20110315
  Receipt Date: 20110301
  Transmission Date: 20110831
  Serious: Yes (Other)
  Sender: FDA-Public Use
  Company Number: PHHY2009CA37317

PATIENT
  Sex: Male

DRUGS (5)
  1. SANDOSTATIN LAR [Suspect]
     Dosage: 60 MG, BIW
     Route: 030
  2. SANDOSTATIN LAR [Suspect]
     Indication: CARCINOID TUMOUR
     Dosage: 60 MG, BIW
     Route: 030
     Dates: start: 20070402
  3. SANDOSTATIN LAR [Suspect]
     Dosage: 60 MG, EVERY 4 WEEKS
     Route: 030
  4. SANDOSTATIN LAR [Suspect]
     Dosage: 60 MG, BIW
     Route: 030
  5. ANTIBIOTICS [Concomitant]

REACTIONS (16)
  - BLOOD PRESSURE INCREASED [None]
  - MASS [None]
  - BLOOD URINE PRESENT [None]
  - GROIN PAIN [None]
  - LUNG NEOPLASM [None]
  - DYSURIA [None]
  - NEPHROLITHIASIS [None]
  - TOOTHACHE [None]
  - JOINT SWELLING [None]
  - FATIGUE [None]
  - FLUSHING [None]
  - URINARY TRACT INFECTION [None]
  - COLLAPSE OF LUNG [None]
  - DYSPNOEA [None]
  - PAIN [None]
  - MUSCULOSKELETAL PAIN [None]
